FAERS Safety Report 9683722 (Version 1)
Quarter: 2013Q4

REPORT INFORMATION
  Report Type: Spontaneous
  Country: DE (occurrence: DE)
  Receive Date: 20131112
  Receipt Date: 20131112
  Transmission Date: 20140711
  Serious: Yes (Other)
  Sender: FDA-Public Use
  Company Number: DE-BRISTOL-MYERS SQUIBB COMPANY-19727338

PATIENT
  Age: 1 Day
  Sex: Female
  Weight: 2.59 kg

DRUGS (4)
  1. ABILIFY [Suspect]
     Route: 064
     Dates: start: 20080408, end: 20081210
  2. LEPONEX [Suspect]
     Route: 064
     Dates: start: 20080408, end: 20081210
  3. EUTHYROX [Suspect]
     Route: 064
     Dates: start: 20080408, end: 20081209
  4. FOLIO [Concomitant]
     Route: 064
     Dates: start: 20080408, end: 20081210

REACTIONS (1)
  - Ventricular septal defect [Unknown]
